FAERS Safety Report 9714055 (Version 2)
Quarter: 2015Q3

REPORT INFORMATION
  Report Type: Spontaneous
  Country: US (occurrence: US)
  Receive Date: 20131126
  Receipt Date: 20150803
  Transmission Date: 20151125
  Serious: No
  Sender: FDA-Public Use
  Company Number: US-GILEAD-2008-0018714

PATIENT
  Age: 75 Year
  Sex: Female
  Weight: 43.09 kg

DRUGS (9)
  1. NORVASC [Concomitant]
     Active Substance: AMLODIPINE BESYLATE
     Route: 048
  2. MOTRIN [Concomitant]
     Active Substance: IBUPROFEN
     Route: 048
  3. LETAIRIS [Suspect]
     Active Substance: AMBRISENTAN
     Indication: COR PULMONALE CHRONIC
     Route: 048
     Dates: start: 20080710
  4. LOZOL [Concomitant]
     Active Substance: INDAPAMIDE
     Route: 048
  5. ASPIRIN EC [Concomitant]
     Active Substance: ASPIRIN
     Route: 048
  6. REVATIO [Concomitant]
     Active Substance: SILDENAFIL CITRATE
     Route: 048
  7. SYNTHROID [Concomitant]
     Active Substance: LEVOTHYROXINE SODIUM
     Route: 048
  8. PRILOSEC [Concomitant]
     Active Substance: OMEPRAZOLE MAGNESIUM
     Route: 048
  9. VITAMIN D [Concomitant]
     Active Substance: CHOLECALCIFEROL
     Route: 048

REACTIONS (2)
  - Anaemia [None]
  - Pain [None]
